FAERS Safety Report 5679736-0 (Version None)
Quarter: 2008Q2

REPORT INFORMATION
  Report Type: 
  Country: None (occurrence: None)
  Receive Date: 20080321
  Receipt Date: 20080318
  Transmission Date: 20081010
  Serious: Yes (Death, Hospitalization)
  Sender: FDA-Public Use
  Company Number: 2008BI004447

PATIENT
  Age: 53 Year
  Sex: Male

DRUGS (1)
  1. TYSABRI [Suspect]
     Indication: MULTIPLE SCLEROSIS
     Dosage: QM;IV
     Route: 042
     Dates: start: 20070724, end: 20080204

REACTIONS (4)
  - PNEUMONIA [None]
  - PULMONARY SEPSIS [None]
  - SEPTIC SHOCK [None]
  - TRANSAMINASES INCREASED [None]
